FAERS Safety Report 9914014 (Version 2)
Quarter: 2014Q1

REPORT INFORMATION
  Report Type: Report from Study
  Country: US (occurrence: US)
  Receive Date: 20140220
  Receipt Date: 20140226
  Transmission Date: 20141002
  Serious: Yes (Hospitalization)
  Sender: FDA-Public Use
  Company Number: US-GLAXOSMITHKLINE-A1039207A

PATIENT
  Age: 71 Year
  Sex: Female
  Weight: 54.9 kg

DRUGS (2)
  1. PAZOPANIB [Suspect]
     Indication: EMBRYONAL RHABDOMYOSARCOMA
     Dosage: 800MG PER DAY
     Route: 048
     Dates: start: 20130814
  2. TRAMETINIB [Suspect]
     Indication: EMBRYONAL RHABDOMYOSARCOMA
     Dosage: 1.5MG PER DAY
     Route: 048
     Dates: start: 20130814

REACTIONS (2)
  - Pyrexia [Unknown]
  - Mental status changes [Unknown]
